FAERS Safety Report 13818066 (Version 1)
Quarter: 2017Q3

REPORT INFORMATION
  Report Type: Spontaneous
  Country: US (occurrence: US)
  Receive Date: 20170731
  Receipt Date: 20170731
  Transmission Date: 20171127
  Serious: No
  Sender: FDA-Public Use
  Company Number: US-ROCHE-750376

PATIENT
  Age: 64 Year
  Sex: Female
  Weight: 42.6 kg

DRUGS (3)
  1. ALLEGRA [Concomitant]
     Active Substance: FEXOFENADINE HYDROCHLORIDE
     Route: 065
  2. BONIVA [Suspect]
     Active Substance: IBANDRONATE SODIUM
     Indication: OSTEOPOROSIS POSTMENOPAUSAL
     Dosage: ^DATE OF USE: 1 YEAR^
     Route: 042
  3. VITAMIN NOS [Concomitant]
     Dosage: DRUG NAME: VITAMIN (WITHOUT IRON)
     Route: 065

REACTIONS (5)
  - Headache [Recovered/Resolved]
  - Diarrhoea [Unknown]
  - Weight decreased [Not Recovered/Not Resolved]
  - Abdominal pain upper [Unknown]
  - Abdominal pain [Unknown]
